FAERS Safety Report 25456311 (Version 1)
Quarter: 2025Q2

REPORT INFORMATION
  Report Type: Spontaneous
  Country: GB (occurrence: GB)
  Receive Date: 20250619
  Receipt Date: 20250619
  Transmission Date: 20250717
  Serious: Yes (Hospitalization, Other)
  Sender: TORRENT PHARMA INC.
  Company Number: None

PATIENT
  Sex: Male

DRUGS (3)
  1. APIXABAN [Suspect]
     Active Substance: APIXABAN
     Indication: Atrial fibrillation
     Dosage: 5MG TWICE DAILY
     Route: 048
     Dates: end: 20250606
  2. BISOPROLOL [Concomitant]
     Active Substance: BISOPROLOL
     Indication: Atrial fibrillation
     Route: 065
  3. SIMVASTATIN [Concomitant]
     Active Substance: SIMVASTATIN
     Indication: Dyslipidaemia
     Route: 065

REACTIONS (8)
  - Skin reaction [Recovering/Resolving]
  - Contusion [Unknown]
  - Rash erythematous [Unknown]
  - Purpura [Unknown]
  - Oedema [Unknown]
  - Skin necrosis [Unknown]
  - Blood blister [Unknown]
  - Rash pruritic [Unknown]
